FAERS Safety Report 6578680-4 (Version None)
Quarter: 2010Q1

REPORT INFORMATION
  Report Type: 
  Country: None (occurrence: None)
  Receive Date: 20100202
  Receipt Date: 20100119
  Transmission Date: 20100710
  Serious: Yes (Other)
  Sender: FDA-Public Use
  Company Number: 2010S1000349

PATIENT
  Sex: Female

DRUGS (3)
  1. PHOSPHOSODA FLAVOR NOT SPECIFIED [Suspect]
     Indication: COLONOSCOPY
     Dosage: 90  ML; TOTAL; PO
     Route: 048
     Dates: start: 20080101
  2. LISINOPRIL [Concomitant]
  3. METFORMIN [Concomitant]

REACTIONS (2)
  - RENAL DISORDER [None]
  - RENAL IMPAIRMENT [None]
